FAERS Safety Report 5799381-6 (Version None)
Quarter: 2008Q3

REPORT INFORMATION
  Report Type: 
  Country: None (occurrence: None)
  Receive Date: 20080703
  Receipt Date: 20080625
  Transmission Date: 20090109
  Serious: Yes (Other)
  Sender: FDA-Public Use
  Company Number: US-PFIZER INC-2008053526

PATIENT
  Sex: Female
  Weight: 52.2 kg

DRUGS (4)
  1. ZOLOFT [Suspect]
     Indication: DEPRESSION
  2. NEURONTIN [Suspect]
     Indication: BACK DISORDER
     Dates: start: 20040101, end: 20040101
  3. XANAX [Suspect]
  4. KLONOPIN [Suspect]

REACTIONS (4)
  - DEPRESSION [None]
  - HALLUCINATION, VISUAL [None]
  - HYSTERECTOMY [None]
  - WITHDRAWAL SYNDROME [None]
